FAERS Safety Report 4877312-0 (Version None)
Quarter: 2006Q1

REPORT INFORMATION
  Report Type: 
  Country: None (occurrence: None)
  Receive Date: 20060109
  Receipt Date: 20051229
  Transmission Date: 20060701
  Serious: Yes (Life-Threatening)
  Sender: FDA-Public Use
  Company Number: 200601IM000006

PATIENT
  Age: 55 Year
  Sex: Male

DRUGS (1)
  1. INFERAX (INTERFERON ALFACON-1) [Suspect]
     Indication: HEPATITIS C
     Dosage: 7 UG, QD, SUBCUTANEOUS
     Route: 058
     Dates: start: 20051014

REACTIONS (2)
  - CEREBELLAR HAEMORRHAGE [None]
  - PLATELET COUNT DECREASED [None]
